FAERS Safety Report 4330788-X (Version None)
Quarter: 2004Q1

REPORT INFORMATION
  Report Type: 
  Country: None (occurrence: None)
  Receive Date: 20040331
  Receipt Date: 20040311
  Transmission Date: 20041129
  Serious: Yes (Other)
  Sender: FDA-Public Use
  Company Number: USA040361779

PATIENT
  Age: 14 Year
  Sex: Male
  Weight: 56 kg

DRUGS (2)
  1. ILETIN-INSULIN-ANIMAL (UNKNOWN FORMULATION) (INSULI [Suspect]
     Indication: DIABETES MELLITUS
     Dates: start: 19560101, end: 20010101
  2. LANTUS [Concomitant]

REACTIONS (6)
  - ARTHRITIS [None]
  - DEVICE FAILURE [None]
  - INJECTION SITE MASS [None]
  - NEUROPATHY [None]
  - PHARMACEUTICAL PRODUCT COMPLAINT [None]
  - SPINAL MUSCULAR ATROPHY CONGENITAL [None]
